FAERS Safety Report 10177829 (Version 1)
Quarter: 2014Q2

REPORT INFORMATION
  Report Type: Spontaneous
  Country: US (occurrence: US)
  Receive Date: 20140516
  Receipt Date: 20140516
  Transmission Date: 20141212
  Serious: No
  Sender: FDA-Public Use
  Company Number: US-SA-2013SA120534

PATIENT
  Age: 64 Year
  Sex: Male
  Weight: 88.45 kg

DRUGS (4)
  1. SOLOSTAR [Suspect]
     Indication: TYPE 2 DIABETES MELLITUS
     Dosage: TAKEN FROM: ABOUT 3 WEEKS AGO
     Dates: start: 20131101
  2. APIDRA SOLOSTAR [Suspect]
     Indication: TYPE 2 DIABETES MELLITUS
     Dosage: TAKEN FROM: ABOUT 3 WEEKS AGO DOSE:5 UNIT(S)
     Route: 058
     Dates: start: 20131101
  3. LASIX [Concomitant]
     Indication: HEART DISEASE CONGENITAL
     Route: 065
     Dates: start: 20121001
  4. PLAVIX [Concomitant]
     Indication: WOUND INFECTION
     Route: 065

REACTIONS (2)
  - Hearing impaired [Unknown]
  - Blood glucose increased [Recovered/Resolved]
